FAERS Safety Report 20801668 (Version 2)
Quarter: 2022Q2

REPORT INFORMATION
  Report Type: Spontaneous
  Country: US (occurrence: US)
  Receive Date: 20220509
  Receipt Date: 20220620
  Transmission Date: 20220721
  Serious: No
  Sender: FDA-Public Use
  Company Number: US-EPICPHARMA-US-2022EPCSPO00261

PATIENT
  Age: 61 Year
  Sex: Female

DRUGS (2)
  1. FUROSEMIDE [Suspect]
     Active Substance: FUROSEMIDE
     Indication: Product used for unknown indication
     Route: 065
  2. ENTRESTO [Suspect]
     Active Substance: SACUBITRIL\VALSARTAN
     Indication: Product used for unknown indication
     Route: 065

REACTIONS (8)
  - Weight increased [Unknown]
  - Abdominal distension [Unknown]
  - Malaise [Unknown]
  - Middle insomnia [Unknown]
  - Dyspnoea [Unknown]
  - Swelling [Unknown]
  - Dizziness [Unknown]
  - Chest discomfort [Unknown]
